FAERS Safety Report 23128576 (Version 2)
Quarter: 2023Q4

REPORT INFORMATION
  Report Type: Other
  Country: CH (occurrence: CH)
  Receive Date: 20231031
  Receipt Date: 20231106
  Transmission Date: 20240109
  Serious: Yes (Hospitalization, Other)
  Sender: FDA-Public Use
  Company Number: CH-SM-2023-16776

PATIENT
  Age: 58 Year
  Sex: Male

DRUGS (21)
  1. PROGRAF [Suspect]
     Active Substance: TACROLIMUS
     Indication: Immunosuppression
     Dosage: UNK UNK, UNKNOWN FREQ.
     Route: 065
     Dates: start: 20230410
  2. PROGRAF [Suspect]
     Active Substance: TACROLIMUS
     Route: 065
  3. TACROLIMUS [Suspect]
     Active Substance: TACROLIMUS
     Indication: Immunosuppression
     Dosage: 10 MG, ONCE DAILY (1 MG 10-0-0-0)
     Route: 048
  4. CELLCEPT [Concomitant]
     Active Substance: MYCOPHENOLATE MOFETIL
     Indication: Immunosuppression
     Dosage: 1000 MG, ONCE DAILY (500 MG 2-0-0-0)
     Route: 048
  5. Prednisolon Streuli [Concomitant]
     Indication: Immunosuppression
     Dosage: UNK UNK, UNKNOWN FREQ.
     Route: 065
  6. GRAFALON [Concomitant]
     Active Substance: LAPINE T-LYMPHOCYTE IMMUNE GLOBULIN
     Indication: Immunosuppression
     Dosage: UNK UNK, UNKNOWN FREQ.
     Route: 065
  7. ROCEPHIN [Concomitant]
     Active Substance: CEFTRIAXONE SODIUM
     Indication: Product used for unknown indication
     Dosage: UNK UNK, UNKNOWN FREQ.
     Route: 065
  8. CLARITHROMYCIN [Concomitant]
     Active Substance: CLARITHROMYCIN
     Indication: Product used for unknown indication
     Dosage: UNK UNK, UNKNOWN FREQ.
     Route: 065
  9. BACTRIM [Concomitant]
     Active Substance: SULFAMETHOXAZOLE\TRIMETHOPRIM
     Indication: Product used for unknown indication
     Dosage: UNK UNK, UNKNOWN FREQ.
     Route: 065
  10. ASPIRIN [Concomitant]
     Active Substance: ASPIRIN
     Indication: Product used for unknown indication
     Dosage: 100 MG, ONCE DAILY (1-0-0-0)
     Route: 048
  11. ESOMEPRAZOL AXAPHARM [Concomitant]
     Indication: Product used for unknown indication
     Dosage: 40 MG, TWICE DAILY (1-0-1-0)
     Route: 048
  12. BISOPROLOL MEPHA [Concomitant]
     Indication: Product used for unknown indication
     Dosage: 5 MG, TWICE DAILY (1-0-1-0)
     Route: 048
  13. CALCIUM\CHOLECALCIFEROL [Concomitant]
     Active Substance: CALCIUM\CHOLECALCIFEROL
     Indication: Product used for unknown indication
     Dosage: 500/800 UNITS NOT REPORTED, TWICE DAILY (1-0-1-0)
     Route: 048
  14. VALCYTE [Concomitant]
     Active Substance: VALGANCICLOVIR HYDROCHLORIDE
     Indication: Product used for unknown indication
     Dosage: 450 MG, ONCE DAILY (0-0-1-0)
     Route: 048
  15. SODIUM BICARBONATE [Concomitant]
     Active Substance: SODIUM BICARBONATE
     Indication: Product used for unknown indication
     Dosage: UNK UNK, THRICE DAILY (1-1-1-0)
     Route: 048
  16. MAGNESIUM ASPARTATE HYDROCHLORIDE [Concomitant]
     Active Substance: MAGNESIUM ASPARTATE HYDROCHLORIDE
     Indication: Product used for unknown indication
     Dosage: 10 MMOL, TWICE DAILY (1-0-1-0)
     Route: 048
  17. Heparinum [Concomitant]
     Indication: Product used for unknown indication
     Dosage: UNK, ONCE DAILY (417 IU/ML IV 20,000 IU/24 HOURS)
     Route: 042
  18. POTASSIUM CHLORIDE [Concomitant]
     Active Substance: POTASSIUM CHLORIDE
     Indication: Product used for unknown indication
     Dosage: 2 MMOL/ML, UNKNOWN FREQ.
     Route: 065
  19. AMIODARON LABATEC [Concomitant]
     Indication: Product used for unknown indication
     Dosage: 150 MG/ 3ML, UNKNOWN FREQ. (AMPULES IV)
     Route: 042
  20. DOBUTREX [Concomitant]
     Active Substance: DOBUTAMINE HYDROCHLORIDE
     Indication: Product used for unknown indication
     Dosage: 250 MG/ 50 ML, UNKNOWN FREQ.
     Route: 042
  21. NOREPINEPHRINE [Concomitant]
     Active Substance: NOREPINEPHRINE
     Indication: Product used for unknown indication
     Dosage: 0.20 MG/ML 50 ML, UNKNOWN FREQ.
     Route: 042

REACTIONS (2)
  - Delirium [Not Recovered/Not Resolved]
  - Toxicity to various agents [Recovered/Resolved]

NARRATIVE: CASE EVENT DATE: 20230919
